FAERS Safety Report 23101414 (Version 2)
Quarter: 2023Q4

REPORT INFORMATION
  Report Type: Report from Study
  Country: CA (occurrence: CA)
  Receive Date: 20231024
  Receipt Date: 20231224
  Transmission Date: 20240109
  Serious: Yes (Other)
  Sender: FDA-Public Use
  Company Number: CA-ABBVIE-5461597

PATIENT
  Sex: Male

DRUGS (1)
  1. RINVOQ [Suspect]
     Active Substance: UPADACITINIB
     Indication: Dermatitis atopic
     Dosage: END DATE 2023,?FORM STRENGTH: 30 MILLIGRAM
     Route: 048
     Dates: start: 20230902

REACTIONS (16)
  - Muscle atrophy [Unknown]
  - Drug ineffective [Unknown]
  - Renal injury [Unknown]
  - Arthralgia [Unknown]
  - Arthralgia [Unknown]
  - Myalgia [Recovered/Resolved]
  - Glomerular filtration rate [Unknown]
  - Illness [Unknown]
  - Acute kidney injury [Unknown]
  - Blood creatine phosphokinase increased [Not Recovered/Not Resolved]
  - Myalgia [Unknown]
  - Blood creatinine increased [Unknown]
  - Upper respiratory tract infection [Unknown]
  - Pain in jaw [Unknown]
  - Back pain [Unknown]
  - Arthralgia [Recovered/Resolved]

NARRATIVE: CASE EVENT DATE: 20230101
